FAERS Safety Report 15878364 (Version 6)
Quarter: 2019Q2

REPORT INFORMATION
  Report Type: Spontaneous
  Country: US (occurrence: US)
  Receive Date: 20190128
  Receipt Date: 20190404
  Transmission Date: 20190711
  Serious: Yes (Disabling)
  Sender: FDA-Public Use
  Company Number: US-AMGEN INC.-USASP2019012537

PATIENT
  Age: 47 Year
  Sex: Female
  Weight: 58.96 kg

DRUGS (1)
  1. AIMOVIG [Suspect]
     Active Substance: ERENUMAB-AOOE
     Indication: MIGRAINE PROPHYLAXIS
     Dosage: 140 MILLIGRAM, QMO
     Route: 065
     Dates: start: 201811, end: 201902

REACTIONS (5)
  - Chest pain [Recovered/Resolved]
  - Rosacea [Recovered/Resolved]
  - Dyspnoea [Recovered/Resolved]
  - Fatigue [Unknown]
  - Antinuclear antibody positive [Recovered/Resolved]

NARRATIVE: CASE EVENT DATE: 201812
